FAERS Safety Report 7607561-X (Version None)
Quarter: 2011Q3

REPORT INFORMATION
  Report Type: 
  Country: None (occurrence: None)
  Receive Date: 20110713
  Receipt Date: 20110704
  Transmission Date: 20111222
  Serious: Yes (Other)
  Sender: FDA-Public Use
  Company Number: PHHY2011DE60808

PATIENT
  Age: 54 Year
  Sex: Male

DRUGS (2)
  1. ZOMETA [Suspect]
     Dosage: 4 MG, PER 5 ML
     Route: 042
     Dates: start: 20080901, end: 20100310
  2. CHEMOTHERAPEUTICS NOS [Concomitant]

REACTIONS (1)
  - OSTEOMYELITIS [None]
